FAERS Safety Report 17570190 (Version 2)
Quarter: 2020Q3

REPORT INFORMATION
  Report Type: Spontaneous
  Country: US (occurrence: US)
  Receive Date: 20200323
  Receipt Date: 20200805
  Transmission Date: 20201102
  Serious: No
  Sender: FDA-Public Use
  Company Number: US-009507513-2003USA008042

PATIENT
  Age: 23 Year
  Sex: Female
  Weight: 77.11 kg

DRUGS (1)
  1. NEXPLANON [Suspect]
     Active Substance: ETONOGESTREL
     Indication: MENSTRUAL DISORDER
     Dosage: IMPLANT (1 DOSAGE FORM)
     Route: 059
     Dates: start: 2016

REACTIONS (3)
  - Incorrect product administration duration [Unknown]
  - Product use in unapproved indication [Unknown]
  - Drug effective for unapproved indication [Unknown]

NARRATIVE: CASE EVENT DATE: 2016
